FAERS Safety Report 6711555-6 (Version None)
Quarter: 2010Q2

REPORT INFORMATION
  Report Type: 
  Country: None (occurrence: None)
  Receive Date: 20100505
  Receipt Date: 20100422
  Transmission Date: 20101027
  Serious: Yes (Other)
  Sender: FDA-Public Use
  Company Number: PHHY2009CA25962

PATIENT
  Sex: Female

DRUGS (5)
  1. EXJADE [Suspect]
     Indication: MYELODYSPLASTIC SYNDROME
     Dosage: 1250 MG, QD
     Route: 048
     Dates: start: 20090608
  2. EXJADE [Suspect]
     Dosage: 1000 MG, QD
     Route: 048
  3. EXJADE [Suspect]
     Dosage: 750 MG, QD
     Route: 048
     Dates: start: 20090401
  4. DIOVAN [Concomitant]
     Dosage: 80 MG, UNK
  5. VITAMINS [Concomitant]

REACTIONS (10)
  - ABNORMAL FAECES [None]
  - ASPARTATE AMINOTRANSFERASE INCREASED [None]
  - BLOOD UREA INCREASED [None]
  - DEPRESSION [None]
  - DIARRHOEA [None]
  - FATIGUE [None]
  - FLATULENCE [None]
  - NASOPHARYNGITIS [None]
  - NAUSEA [None]
  - RENAL DISORDER [None]
